FAERS Safety Report 7910644-8 (Version None)
Quarter: 2011Q4

REPORT INFORMATION
  Report Type: 
  Country: None (occurrence: None)
  Receive Date: 20111111
  Receipt Date: 20111101
  Transmission Date: 20120403
  Serious: Yes (Life-Threatening)
  Sender: FDA-Public Use
  Company Number: GB-ROCHE-1008744

PATIENT
  Age: 73 Year
  Sex: Female
  Weight: 43 kg

DRUGS (6)
  1. NAPROSYN [Suspect]
     Indication: PAIN IN EXTREMITY
  2. BECLOMETHASONE DIPROPIONATE [Concomitant]
  3. LEVOTHYROXINE SODIUM [Concomitant]
  4. NAPROSYN [Suspect]
     Indication: BACK PAIN
     Route: 048
     Dates: start: 20110817, end: 20110821
  5. SALMETEROL [Concomitant]
  6. VENTOLIN [Concomitant]

REACTIONS (6)
  - VISION BLURRED [None]
  - DIZZINESS [None]
  - ORAL PAIN [None]
  - RASH [None]
  - THROAT TIGHTNESS [None]
  - OROPHARYNGEAL PAIN [None]
